FAERS Safety Report 4639273-9 (Version None)
Quarter: 2005Q2

REPORT INFORMATION
  Report Type: 
  Country: None (occurrence: None)
  Receive Date: 20050418
  Receipt Date: 20050405
  Transmission Date: 20051028
  Serious: Yes (Hospitalization)
  Sender: FDA-Public Use
  Company Number: 04P-028-0251708-00

PATIENT
  Age: 24 Year
  Sex: Male

DRUGS (8)
  1. KALETRA [Suspect]
     Indication: HIV INFECTION
     Dosage: 3 DOSAGE FORMS, 2 IN 1 D
     Dates: start: 20030704
  2. ATAZANAVIR [Suspect]
     Indication: HIV INFECTION
     Dosage: 300 MG, 1 IN 1 D, ORAL
     Route: 048
     Dates: start: 20030704
  3. LAMIVUDINE [Suspect]
     Indication: HIV INFECTION
     Dosage: 150 MG, 2 IN 1 D
     Route: 048
     Dates: start: 20030704
  4. TENOFOVIR [Suspect]
     Indication: HIV INFECTION
     Dosage: 300 MG, 1 IN 1 D
     Dates: start: 20030704
  5. AZITHROMYCIN [Suspect]
     Dosage: 600 MG, 1 IN 1 D
     Dates: start: 20031205
  6. ETHAMBUTOL HCL [Suspect]
     Dosage: 800 MG, 1 IN 1 D
     Dates: start: 20031205
  7. BACTRIM [Suspect]
     Dosage: 1 DOSAGE FORMS, 1 IN 1 D
  8. DIDANOSINE [Suspect]
     Indication: HIV INFECTION
     Dosage: 250 MG, 1 IN 1 D
     Dates: start: 20030704

REACTIONS (8)
  - GASTRITIS [None]
  - HEPATOMEGALY [None]
  - ILEUS PARALYTIC [None]
  - INTESTINAL FUNCTIONAL DISORDER [None]
  - LYMPHADENOPATHY [None]
  - MYCOBACTERIUM AVIUM COMPLEX INFECTION [None]
  - PAIN [None]
  - WEIGHT DECREASED [None]
